FAERS Safety Report 8422671-5 (Version None)
Quarter: 2012Q2

REPORT INFORMATION
  Report Type: 
  Country: None (occurrence: None)
  Receive Date: 20120608
  Receipt Date: 20120529
  Transmission Date: 20120825
  Serious: Yes (Hospitalization)
  Sender: FDA-Public Use
  Company Number: US-ABBOTT-12P-163-0940838-00

PATIENT
  Age: 36 Year
  Sex: Female

DRUGS (4)
  1. FOLIC ACID [Concomitant]
     Indication: VITAMIN SUPPLEMENTATION
     Route: 048
  2. HUMIRA [Suspect]
     Indication: CROHN'S DISEASE
     Dates: start: 20120301, end: 20120319
  3. METHOTREXATE [Concomitant]
     Indication: CROHN'S DISEASE
     Dosage: 3 TABLETS WEEKLY
     Route: 048
  4. XANAX [Concomitant]
     Indication: ANXIETY
     Route: 048

REACTIONS (4)
  - SMALL INTESTINAL OBSTRUCTION [None]
  - ACNE [None]
  - BLOOD POTASSIUM DECREASED [None]
  - RASH PAPULAR [None]
